FAERS Safety Report 15524809 (Version 2)
Quarter: 2018Q4

REPORT INFORMATION
  Report Type: Spontaneous
  Country: HU (occurrence: HU)
  Receive Date: 20181019
  Receipt Date: 20181029
  Transmission Date: 20190205
  Serious: Yes (Death, Hospitalization, Other)
  Sender: FDA-Public Use
  Company Number: HU-ALLERGAN-1849893US

PATIENT
  Age: 78 Year
  Sex: Male

DRUGS (1)
  1. CEFTAZIDIME;AVIBACTAM - BP [Suspect]
     Active Substance: AVIBACTAM SODIUM\CEFTAZIDIME
     Indication: PNEUMONIA KLEBSIELLA
     Dosage: 2.5 MG, UNK
     Route: 042
     Dates: start: 20180707, end: 20180713

REACTIONS (6)
  - Pyrexia [Unknown]
  - Septic shock [Fatal]
  - Sepsis [Recovered/Resolved]
  - Diarrhoea [Unknown]
  - Pathogen resistance [Unknown]
  - Clostridium difficile infection [Recovered/Resolved]

NARRATIVE: CASE EVENT DATE: 20180718
